FAERS Safety Report 8600849-5 (Version None)
Quarter: 2012Q3

REPORT INFORMATION
  Report Type: 
  Country: None (occurrence: None)
  Receive Date: 20120817
  Receipt Date: 20120807
  Transmission Date: 20120928
  Serious: Yes (Hospitalization)
  Sender: FDA-Public Use
  Company Number: US-ELI_LILLY_AND_COMPANY-US201201008260

PATIENT
  Sex: Female

DRUGS (5)
  1. FORTEO [Suspect]
     Indication: OSTEOPOROSIS
     Dosage: 20 UG, QD
     Dates: start: 20111101
  2. PREDNISONE TAB [Concomitant]
     Dosage: UNK
  3. FORTEO [Suspect]
     Dosage: 20 UG, QD
     Dates: start: 20111101
  4. FORTEO [Suspect]
     Dosage: 20 UG, QD
     Dates: start: 20111101
  5. WELLBUTRIN [Concomitant]

REACTIONS (19)
  - ABDOMINAL DISTENSION [None]
  - TOOTH DISORDER [None]
  - WEIGHT INCREASED [None]
  - SKIN DISORDER [None]
  - HEART RATE INCREASED [None]
  - CHRONIC OBSTRUCTIVE PULMONARY DISEASE [None]
  - NAUSEA [None]
  - FATIGUE [None]
  - ARTHRALGIA [None]
  - AMNESIA [None]
  - NERVOUSNESS [None]
  - DIZZINESS [None]
  - WEIGHT DECREASED [None]
  - ABDOMINAL PAIN [None]
  - INJECTION SITE SWELLING [None]
  - DEMENTIA [None]
  - ANXIETY [None]
  - HOSPITALISATION [None]
  - MUSCLE SPASMS [None]
